FAERS Safety Report 5927086-7 (Version None)
Quarter: 2008Q4

REPORT INFORMATION
  Report Type: 
  Country: None (occurrence: None)
  Receive Date: 20081022
  Receipt Date: 20081016
  Transmission Date: 20090506
  Serious: No
  Sender: FDA-Public Use
  Company Number: US-B.I. PHARMACEUTICALS,INC./RIDGEFIELD-2008-BP-15947BP

PATIENT
  Sex: Female

DRUGS (1)
  1. FLOMAX [Suspect]
     Indication: URINARY RETENTION
     Route: 048

REACTIONS (3)
  - ADVERSE DRUG REACTION [None]
  - DIZZINESS [None]
  - VULVOVAGINAL DRYNESS [None]
